FAERS Safety Report 4966790-4 (Version None)
Quarter: 2006Q2

REPORT INFORMATION
  Report Type: 
  Country: None (occurrence: None)
  Receive Date: 20060407
  Receipt Date: 20050422
  Transmission Date: 20061013
  Serious: Yes (Hospitalization, Disabling)
  Sender: FDA-Public Use
  Company Number: US-MERCK-0504USA04194

PATIENT
  Age: 42 Year
  Sex: Male
  Weight: 127 kg

DRUGS (18)
  1. AMBIEN [Concomitant]
     Route: 048
  2. VIAGRA [Concomitant]
     Route: 048
  3. ATIVAN [Concomitant]
     Indication: STRESS
     Route: 048
  4. ZOCOR [Concomitant]
     Route: 048
  5. ASPIRIN [Concomitant]
     Route: 065
  6. VIOXX [Suspect]
     Indication: PAIN
     Route: 048
     Dates: start: 20010201, end: 20040806
  7. VIOXX [Suspect]
     Indication: ARTHRITIS
     Route: 048
     Dates: start: 20010201, end: 20040806
  8. COUMADIN [Concomitant]
     Route: 048
  9. IMDUR [Concomitant]
     Route: 065
  10. LASIX [Concomitant]
     Route: 065
  11. PLAVIX [Concomitant]
     Route: 065
  12. WELLBUTRIN [Suspect]
     Indication: DEPRESSION
     Route: 048
  13. WELLBUTRIN [Suspect]
     Route: 048
  14. GLUCOVANCE [Concomitant]
     Route: 065
  15. VALIUM [Concomitant]
     Indication: ANXIETY
     Route: 048
  16. NAPROXEN SODIUM [Concomitant]
     Route: 048
  17. AFRIN [Concomitant]
     Route: 055
  18. EFFEXOR [Concomitant]
     Route: 065

REACTIONS (63)
  - ABDOMINAL DISTENSION [None]
  - ACUTE MYOCARDIAL INFARCTION [None]
  - ACUTE SINUSITIS [None]
  - ANGER [None]
  - ANKLE RECONSTRUCTION [None]
  - ANTICOAGULATION DRUG LEVEL BELOW THERAPEUTIC [None]
  - ANXIETY [None]
  - ARTHRALGIA [None]
  - BONE DISORDER [None]
  - CHEST PAIN [None]
  - COLONIC POLYP [None]
  - CONSTIPATION [None]
  - CORONARY ARTERY DISEASE [None]
  - CORONARY ARTERY OCCLUSION [None]
  - CYANOSIS [None]
  - DEPRESSION [None]
  - DIABETES MELLITUS [None]
  - DIARRHOEA [None]
  - DRY MOUTH [None]
  - DYSPEPSIA [None]
  - DYSPNOEA [None]
  - EPIGASTRIC DISCOMFORT [None]
  - EPISTAXIS [None]
  - ERUCTATION [None]
  - FATIGUE [None]
  - FEAR [None]
  - FEELING HOT [None]
  - FLATULENCE [None]
  - GASTROINTESTINAL DISORDER [None]
  - HAEMORRHOIDS [None]
  - HEADACHE [None]
  - HEART RATE INCREASED [None]
  - HORNER'S SYNDROME [None]
  - HYPERLIPIDAEMIA [None]
  - HYPERTENSION [None]
  - INSOMNIA [None]
  - INTERVERTEBRAL DISC DEGENERATION [None]
  - INTERVERTEBRAL DISC PROTRUSION [None]
  - IRRITABLE BOWEL SYNDROME [None]
  - LOSS OF CONSCIOUSNESS [None]
  - MIGRAINE [None]
  - MYOCARDIAL INFARCTION [None]
  - MYOPATHY [None]
  - NAUSEA [None]
  - OSTEOARTHRITIS [None]
  - PAIN IN EXTREMITY [None]
  - PALLOR [None]
  - PALPITATIONS [None]
  - PERICARDITIS [None]
  - POLYP COLORECTAL [None]
  - PULMONARY EMBOLISM [None]
  - RECTAL HAEMORRHAGE [None]
  - RESTLESS LEGS SYNDROME [None]
  - SLEEP APNOEA SYNDROME [None]
  - SLEEP DISORDER [None]
  - STRESS [None]
  - SYNCOPE [None]
  - SYNCOPE VASOVAGAL [None]
  - TACHYCARDIA [None]
  - THERAPY NON-RESPONDER [None]
  - TREATMENT NONCOMPLIANCE [None]
  - VENTRICULAR TACHYCARDIA [None]
  - VOMITING [None]
